FAERS Safety Report 6511815-8 (Version None)
Quarter: 2009Q4

REPORT INFORMATION
  Report Type: 
  Country: None (occurrence: None)
  Receive Date: 20091222
  Receipt Date: 20091211
  Transmission Date: 20100525
  Serious: Yes (Hospitalization)
  Sender: FDA-Public Use
  Company Number: US-MYLANLABS-2009S1021273

PATIENT
  Age: 79 Year
  Sex: Female
  Weight: 54.43 kg

DRUGS (4)
  1. FENTANYL CITRATE [Suspect]
     Indication: CANCER PAIN
     Dosage: CHANGED Q72H
     Route: 062
     Dates: start: 20091001, end: 20091123
  2. TYLENOL (CAPLET) [Concomitant]
     Indication: PAIN
     Route: 048
  3. ATIVAN [Concomitant]
     Indication: ANXIETY
     Route: 048
  4. METFORMIN HCL [Concomitant]
     Indication: DIABETES MELLITUS
     Route: 048

REACTIONS (4)
  - CHOKING [None]
  - ELDER ABUSE [None]
  - INCORRECT DRUG ADMINISTRATION DURATION [None]
  - LETHARGY [None]
